FAERS Safety Report 8560274-2 (Version None)
Quarter: 2012Q3

REPORT INFORMATION
  Report Type: 
  Country: None (occurrence: None)
  Receive Date: 20120802
  Receipt Date: 20120731
  Transmission Date: 20120928
  Serious: Yes (Hospitalization)
  Sender: FDA-Public Use
  Company Number: FR-SP-2012-07305

PATIENT
  Sex: Male

DRUGS (5)
  1. NOVORAPID [Concomitant]
  2. ASPIRIN [Concomitant]
  3. IMMUCYST [Suspect]
     Indication: BLADDER CANCER
     Route: 043
     Dates: start: 20120523, end: 20120606
  4. LEVEMIR [Concomitant]
  5. AMLODIPINE BESYLATE [Concomitant]

REACTIONS (4)
  - C-REACTIVE PROTEIN INCREASED [None]
  - VOMITING [None]
  - PYREXIA [None]
  - CHILLS [None]
